FAERS Safety Report 5357243-2 (Version None)
Quarter: 2007Q2

REPORT INFORMATION
  Report Type: 
  Country: None (occurrence: None)
  Receive Date: 20070614
  Receipt Date: 20070606
  Transmission Date: 20071010
  Serious: Yes (Other)
  Sender: FDA-Public Use
  Company Number: B0475005A

PATIENT
  Sex: Female

DRUGS (1)
  1. CARTIA XT [Suspect]
     Indication: THROMBOSIS PROPHYLAXIS
     Dosage: 1TAB PER DAY
     Route: 048
     Dates: start: 19990101

REACTIONS (1)
  - HAEMORRHAGE [None]
